FAERS Safety Report 6148286-X (Version None)
Quarter: 2009Q2

REPORT INFORMATION
  Report Type: 
  Country: None (occurrence: None)
  Receive Date: 20090406
  Receipt Date: 20090325
  Transmission Date: 20091009
  Serious: Yes (Hospitalization)
  Sender: FDA-Public Use
  Company Number: GXKR2009US03823

PATIENT
  Age: 45 Year
  Sex: Female

DRUGS (7)
  1. CLOZAPINE [Suspect]
     Indication: SCHIZOPHRENIA, PARANOID TYPE
  2. ARIPIPRAZOLE [Suspect]
     Indication: SCHIZOPHRENIA, PARANOID TYPE
     Dosage: 15 MG
  3. HALOPERIDOL [Concomitant]
  4. VALPROIC ACID [Concomitant]
  5. NORTRIPTYLINE HCL [Concomitant]
  6. ALBUTEROL [Concomitant]
  7. IBUPROFEN [Concomitant]

REACTIONS (14)
  - ABDOMINAL PAIN UPPER [None]
  - AGGRESSION [None]
  - AGITATION [None]
  - CRYING [None]
  - DIABETIC KETOACIDOSIS [None]
  - DIZZINESS [None]
  - FRUSTRATION [None]
  - INSOMNIA [None]
  - IRRITABILITY [None]
  - KETOACIDOSIS [None]
  - PSYCHOTIC DISORDER [None]
  - RESTLESSNESS [None]
  - VERBAL ABUSE [None]
  - WITHDRAWAL SYNDROME [None]
